FAERS Safety Report 23084812 (Version 1)
Quarter: 2023Q4

REPORT INFORMATION
  Report Type: Spontaneous
  Country: VE (occurrence: VE)
  Receive Date: 20231019
  Receipt Date: 20231019
  Transmission Date: 20240110
  Serious: Yes (Other)
  Sender: FDA-Public Use
  Company Number: VE-PFIZER INC-PV202300171044

PATIENT
  Age: 57 Year
  Sex: Female

DRUGS (1)
  1. BOSULIF [Suspect]
     Active Substance: BOSUTINIB MONOHYDRATE
     Indication: Chronic myeloid leukaemia
     Dosage: 200 MG (2 X 100 MG TABLETS)

REACTIONS (7)
  - Loss of consciousness [Unknown]
  - Fall [Unknown]
  - Contusion [Unknown]
  - Skin disorder [Unknown]
  - Ligament sprain [Unknown]
  - Pain [Unknown]
  - Spinal column injury [Unknown]

NARRATIVE: CASE EVENT DATE: 20231010
